FAERS Safety Report 7481480-4 (Version None)
Quarter: 2011Q2

REPORT INFORMATION
  Report Type: 
  Country: None (occurrence: None)
  Receive Date: 20110516
  Receipt Date: 20110506
  Transmission Date: 20111010
  Serious: Yes (Other)
  Sender: FDA-Public Use
  Company Number: PHHY2011US38983

PATIENT
  Sex: Female

DRUGS (2)
  1. SPIRONOLACTONE [Concomitant]
     Dosage: UNK
  2. GILENYA [Suspect]
     Indication: MULTIPLE SCLEROSIS
     Dosage: 0.5 MG, QD
     Route: 048
     Dates: start: 20110505

REACTIONS (6)
  - ELECTROCARDIOGRAM ABNORMAL [None]
  - ATRIOVENTRICULAR BLOCK SECOND DEGREE [None]
  - DIZZINESS [None]
  - MONOCYTE COUNT INCREASED [None]
  - PALPITATIONS [None]
  - DYSPNOEA [None]
